FAERS Safety Report 15738366 (Version 1)
Quarter: 2018Q4

REPORT INFORMATION
  Report Type: Spontaneous
  Country: US (occurrence: US)
  Receive Date: 20181219
  Receipt Date: 20181219
  Transmission Date: 20190205
  Serious: No
  Sender: FDA-Public Use
  Company Number: US-AUROBINDO-AUR-APL-2018-044962

PATIENT

DRUGS (1)
  1. CITALOPRAM TABLET [Suspect]
     Active Substance: CITALOPRAM HYDROBROMIDE
     Indication: DEPRESSION
     Dosage: UNK

REACTIONS (5)
  - Anxiety [Unknown]
  - Drug ineffective [Unknown]
  - Nightmare [Unknown]
  - Insomnia [Unknown]
  - Sleep disorder [Unknown]
